FAERS Safety Report 11460450 (Version 1)
Quarter: 2015Q3

REPORT INFORMATION
  Report Type: Spontaneous
  Country: NL (occurrence: NL)
  Receive Date: 20150904
  Receipt Date: 20150904
  Transmission Date: 20151125
  Serious: Yes (Disabling)
  Sender: FDA-Public Use
  Company Number: NL-009507513-1508NLD012943

PATIENT
  Age: 64 Year
  Sex: Male
  Weight: 83 kg

DRUGS (2)
  1. ASPIRIN. [Concomitant]
     Active Substance: ASPIRIN
     Indication: MYOCARDIAL INFARCTION
     Dosage: 1 TIME PER DAY
     Route: 048
     Dates: start: 20140220
  2. EZETROL [Suspect]
     Active Substance: EZETIMIBE
     Indication: MYOCARDIAL INFARCTION
     Dosage: 1 TABLET OF 10 MG
     Route: 048
     Dates: start: 20150410, end: 20150710

REACTIONS (2)
  - Myalgia [Not Recovered/Not Resolved]
  - Muscular weakness [Not Recovered/Not Resolved]

NARRATIVE: CASE EVENT DATE: 20150415
